FAERS Safety Report 5108363-9 (Version None)
Quarter: 2006Q3

REPORT INFORMATION
  Report Type: 
  Country: None (occurrence: None)
  Receive Date: 20060915
  Receipt Date: 20060628
  Transmission Date: 20061208
  Serious: Yes (Other)
  Sender: FDA-Public Use
  Company Number: 2006018723

PATIENT
  Age: 51 Year
  Sex: Female

DRUGS (1)
  1. BEXTRA [Suspect]
     Indication: NECK PAIN
     Dosage: 20 MG (20 MG, 1 IN 1 D), ORAL
     Route: 047
     Dates: start: 20040129

REACTIONS (4)
  - CELLULITIS [None]
  - ERYTHEMA NODOSUM [None]
  - HYPERSENSITIVITY [None]
  - STEVENS-JOHNSON SYNDROME [None]
